FAERS Safety Report 6584546-6 (Version None)
Quarter: 2010Q1

REPORT INFORMATION
  Report Type: 
  Country: None (occurrence: None)
  Receive Date: 20100213
  Receipt Date: 20100213
  Transmission Date: 20100710
  Serious: Yes (Other)
  Sender: FDA-Public Use
  Company Number: None

PATIENT
  Age: 18 Year
  Sex: Female
  Weight: 48.7 kg

DRUGS (2)
  1. TOPIRAMATE [Suspect]
     Indication: EPILEPSY
     Dosage: 6-2009 - 1 MONTH
  2. TOPIRAMATE [Suspect]
     Indication: HEADACHE
     Dosage: 6-2009 - 1 MONTH

REACTIONS (2)
  - CONVULSION [None]
  - HEADACHE [None]
